FAERS Safety Report 24969389 (Version 2)
Quarter: 2025Q1

REPORT INFORMATION
  Report Type: Report from Study
  Country: US (occurrence: US)
  Receive Date: 20250214
  Receipt Date: 20250226
  Transmission Date: 20250408
  Serious: Yes (Other)
  Sender: ROCHE
  Company Number: US-ROCHE-10000205811

PATIENT
  Age: 26 Year
  Sex: Female

DRUGS (5)
  1. OCREVUS [Suspect]
     Active Substance: OCRELIZUMAB
     Indication: Multiple sclerosis
     Route: 042
  2. MIRABEGRON [Concomitant]
     Active Substance: MIRABEGRON
     Route: 048
  3. VITAMIN D3 [Concomitant]
     Active Substance: CHOLECALCIFEROL
     Dosage: 25 MCG
     Route: 048
  4. ZOFRAN ODT [Concomitant]
     Active Substance: ONDANSETRON HYDROCHLORIDE
     Route: 048
  5. MIDOL EXTENDED RELIEF [Concomitant]
     Active Substance: NAPROXEN SODIUM
     Route: 048

REACTIONS (3)
  - Multiple sclerosis [Unknown]
  - JC polyomavirus test positive [Unknown]
  - Scoliosis [Unknown]
